FAERS Safety Report 9038157 (Version 1)
Quarter: 2013Q1

REPORT INFORMATION
  Report Type: Spontaneous
  Country: US (occurrence: US)
  Receive Date: 20130129
  Receipt Date: 20130129
  Transmission Date: 20140127
  Serious: No
  Sender: FDA-Public Use
  Company Number: US-GLAXOSMITHKLINE-A0970853A

PATIENT
  Age: 79 Year
  Sex: Female

DRUGS (8)
  1. HUMIRA [Concomitant]
  2. RITUXAN [Concomitant]
  3. LEXAPRO [Concomitant]
  4. PLAQUENIL [Concomitant]
  5. PREDNISONE [Concomitant]
  6. FOLIC ACID [Concomitant]
  7. NORVASC [Concomitant]
  8. WELLBUTRIN XL [Suspect]
     Indication: DEPRESSION
     Dosage: 300MGD PER DAY
     Route: 048
     Dates: start: 2008

REACTIONS (3)
  - Depression [Not Recovered/Not Resolved]
  - Drug ineffective [Unknown]
  - Product quality issue [Unknown]
